FAERS Safety Report 8169188-3 (Version None)
Quarter: 2012Q1

REPORT INFORMATION
  Report Type: 
  Country: None (occurrence: None)
  Receive Date: 20120227
  Receipt Date: 20120221
  Transmission Date: 20120608
  Serious: Yes (Death)
  Sender: FDA-Public Use
  Company Number: US-ASTRAZENECA-2012SE03617

PATIENT
  Age: 72 Year
  Sex: Male

DRUGS (12)
  1. SPIRIVA [Concomitant]
  2. ALBUTEROL [Concomitant]
  3. SEROQUEL [Suspect]
     Route: 048
     Dates: start: 20110829
  4. SEROQUEL [Suspect]
     Indication: SLEEP DISORDER
     Route: 048
     Dates: start: 20090210, end: 20110829
  5. PREDNISONE [Concomitant]
  6. SEROQUEL [Suspect]
     Indication: PSYCHOTIC DISORDER
     Route: 048
     Dates: start: 20090210, end: 20110829
  7. SEROQUEL [Suspect]
     Route: 048
     Dates: start: 20110829
  8. DIGOXIN [Concomitant]
  9. VICODIN [Concomitant]
  10. SIMVASTATIN [Concomitant]
  11. LOSARTAN POTASSIUM [Concomitant]
  12. COREG [Concomitant]

REACTIONS (2)
  - LUNG NEOPLASM MALIGNANT [None]
  - OFF LABEL USE [None]
